FAERS Safety Report 21599516 (Version 1)
Quarter: 2022Q4

REPORT INFORMATION
  Report Type: Spontaneous
  Country: FR (occurrence: FR)
  Receive Date: 20221115
  Receipt Date: 20221115
  Transmission Date: 20230112
  Serious: Yes (Other)
  Sender: FDA-Public Use
  Company Number: None

PATIENT
  Age: 34 Year
  Sex: Male

DRUGS (6)
  1. OLANZAPINE [Suspect]
     Active Substance: OLANZAPINE
     Indication: Drug abuse
     Dosage: 3 CP OLANZAPINE 5 MG
     Route: 048
     Dates: start: 20221020, end: 20221020
  2. COCAINE [Suspect]
     Active Substance: COCAINE
     Indication: Drug abuse
     Dosage: 4 GRAMMES EN 6 HEURES
     Route: 065
     Dates: start: 20221020, end: 20221020
  3. COCAINE [Suspect]
     Active Substance: COCAINE
     Dosage: UNK UNK, UNKNOWN
     Route: 065
  4. ALCOHOL [Suspect]
     Active Substance: ALCOHOL
     Indication: Drug abuse
     Dosage: 1 BOUTEILLE DE ROS?
     Route: 048
     Dates: start: 20221020, end: 20221020
  5. ALCOHOL [Suspect]
     Active Substance: ALCOHOL
     Dosage: NON RENSEIGN?E
     Route: 048
  6. VALIUM [Suspect]
     Active Substance: DIAZEPAM
     Indication: Drug abuse
     Dosage: 10 CP (DOSAGE NON RENSEIGN?)
     Route: 048
     Dates: start: 20221020, end: 20221020

REACTIONS (4)
  - Poisoning [Recovered/Resolved]
  - Drug abuse [Not Recovered/Not Resolved]
  - Suicidal ideation [Recovered/Resolved]
  - Tachycardia [Recovered/Resolved]

NARRATIVE: CASE EVENT DATE: 20221020
